FAERS Safety Report 9721459 (Version 2)
Quarter: 2013Q4

REPORT INFORMATION
  Report Type: Spontaneous
  Country: US (occurrence: US)
  Receive Date: 20131129
  Receipt Date: 20131129
  Transmission Date: 20140711
  Serious: Yes (Hospitalization, Other)
  Sender: FDA-Public Use
  Company Number: US-ASTRAZENECA-2013SE81043

PATIENT
  Age: 68 Year
  Sex: Female
  Weight: 80.7 kg

DRUGS (15)
  1. PULMICORT FLEXHALER [Suspect]
     Indication: ASTHMA
     Dosage: 1 PUFF BID
     Route: 055
     Dates: start: 2013, end: 201304
  2. PULMICORT FLEXHALER [Suspect]
     Indication: ASTHMA
     Dosage: 1 PUFF BID
     Route: 055
     Dates: start: 201307, end: 201309
  3. PULMICORT FLEXHALER [Suspect]
     Indication: ASTHMA
     Route: 055
     Dates: start: 201309
  4. PULMICORT FLEXHALER [Suspect]
     Indication: ASTHMA
     Route: 055
     Dates: start: 201309
  5. LISINOPRIL [Suspect]
     Indication: HYPERTENSION
     Route: 048
     Dates: start: 2003
  6. ALBUTEROL PROVENTIL INHALER [Concomitant]
     Indication: INHALATION THERAPY
     Dosage: DAILY
     Route: 055
     Dates: start: 201309
  7. PERFOROMIST [Concomitant]
     Indication: ASTHMA
     Dosage: 20MG/2ML BID
     Route: 055
     Dates: start: 201309
  8. CLONIDINE [Concomitant]
     Indication: HYPERTENSION
     Dosage: 0.1MG HALF TABLET
     Route: 048
     Dates: start: 201309
  9. CARVEDILOL [Concomitant]
     Indication: HYPERTENSION
     Route: 048
  10. SINGULAIR [Concomitant]
     Indication: ASTHMA
     Route: 048
     Dates: start: 201305
  11. PRAVASTATIN [Concomitant]
     Indication: BLOOD CHOLESTEROL INCREASED
     Route: 048
  12. PROTONIX [Concomitant]
     Indication: GASTROOESOPHAGEAL REFLUX DISEASE
     Route: 048
  13. NASONEX [Concomitant]
     Indication: ASTHMA
     Dosage: 2 SPRAYS DAILY
     Route: 045
  14. NEURONTIN [Concomitant]
     Indication: BACK PAIN
     Route: 048
  15. ADVAIR [Concomitant]
     Dates: end: 201307

REACTIONS (17)
  - Pneumonia [Recovered/Resolved]
  - Atelectasis [Recovered/Resolved]
  - Wheezing [Not Recovered/Not Resolved]
  - Asthma [Recovered/Resolved]
  - Pulmonary congestion [Recovered/Resolved]
  - Chest discomfort [Not Recovered/Not Resolved]
  - Blood pressure abnormal [Not Recovered/Not Resolved]
  - Ovarian cyst [Recovered/Resolved]
  - Drug administration error [Unknown]
  - Osteoarthritis [Not Recovered/Not Resolved]
  - Neck pain [Not Recovered/Not Resolved]
  - Back pain [Not Recovered/Not Resolved]
  - Chest pain [Recovered/Resolved]
  - Gallbladder disorder [Recovered/Resolved]
  - Throat irritation [Recovered/Resolved]
  - Incorrect dose administered [Unknown]
  - Off label use [Unknown]
